FAERS Safety Report 5236616-2 (Version None)
Quarter: 2007Q1

REPORT INFORMATION
  Report Type: 
  Country: None (occurrence: None)
  Receive Date: 20070208
  Receipt Date: 20070130
  Transmission Date: 20070707
  Serious: Yes (Other)
  Sender: FDA-Public Use
  Company Number: 233004K06USA

PATIENT
  Age: 32 Year
  Sex: Female
  Weight: 45.8133 kg

DRUGS (5)
  1. REBIF [Suspect]
     Indication: MULTIPLE SCLEROSIS
     Dosage: 44 MCG, 3 IN 1 WEEKS, SUBCUTANEOUS
     Route: 058
     Dates: start: 20050509
  2. AMITRIPTYLINE HCL [Concomitant]
  3. KLONOPIN [Concomitant]
  4. EFFEXOR [Concomitant]
  5. ZONEGRAN [Concomitant]

REACTIONS (5)
  - CONVULSION [None]
  - FATIGUE [None]
  - GAIT DISTURBANCE [None]
  - HEADACHE [None]
  - PHOTOPHOBIA [None]
